FAERS Safety Report 11538352 (Version 1)
Quarter: 2015Q3

REPORT INFORMATION
  Report Type: Spontaneous
  Country: FR (occurrence: FR)
  Receive Date: 20150922
  Receipt Date: 20150922
  Transmission Date: 20151125
  Serious: Yes (Death)
  Sender: FDA-Public Use
  Company Number: FR-BAXTER-2015BAX051130

PATIENT
  Age: 71 Year
  Sex: Female

DRUGS (16)
  1. MITOXANTRONE [Suspect]
     Active Substance: MITOXANTRONE HYDROCHLORIDE
     Indication: B-CELL LYMPHOMA
     Dosage: 2 CYCLES, MIV PROTOCOL
     Route: 065
     Dates: start: 201206, end: 201206
  2. OXALIPLATIN. [Suspect]
     Active Substance: OXALIPLATIN
     Indication: B-CELL LYMPHOMA
     Dosage: DHOX PROTOCOL
     Route: 065
     Dates: start: 20120712
  3. VINCRISTINE [Suspect]
     Active Substance: VINCRISTINE
     Indication: B-CELL LYMPHOMA
     Dosage: 8 COURSES, R-CHOP PROTOCOL
     Route: 042
     Dates: start: 20111008, end: 20120309
  4. DEXAMETHASONE. [Suspect]
     Active Substance: DEXAMETHASONE
     Indication: B-CELL LYMPHOMA
     Dosage: DHOX PROTOCOL
     Route: 065
     Dates: start: 20120712
  5. CELLTOP 100 MG/5 ML, SOLUTION INJECTABLE POUR PERFUSION [Suspect]
     Active Substance: ETOPOSIDE
     Indication: B-CELL LYMPHOMA
     Dosage: 2 CYCLES, MIV PROTOCOL
     Route: 065
     Dates: start: 201206, end: 201206
  6. CORTANCYL [Suspect]
     Active Substance: PREDNISONE
     Indication: B-CELL LYMPHOMA
     Dosage: 8 COURSES; FROM DAY 2 TO DAY 5, R-CHOP PROTOCOL
     Route: 048
     Dates: start: 20111009, end: 20120313
  7. METHYLPREDNISOLONE. [Suspect]
     Active Substance: METHYLPREDNISOLONE
     Indication: B-CELL LYMPHOMA
     Dosage: 8 COURSES
     Route: 042
     Dates: start: 20111008, end: 20120309
  8. OXALIPLATIN. [Suspect]
     Active Substance: OXALIPLATIN
     Dosage: THIRD COURSE, DHOX PROTOCOL
     Route: 065
     Dates: start: 201208
  9. UROMITEXAN 1 G/10 ML, SOLUTION INJECTABLE POUR PERFUSION EN FLACON [Suspect]
     Active Substance: MESNA
     Indication: B-CELL LYMPHOMA
     Dosage: 8 COURSES OF 550 MG X 2, 6 COURSES OF 890 MG X 3
     Route: 065
     Dates: start: 20111008, end: 20120625
  10. MABTHERA [Suspect]
     Active Substance: RITUXIMAB
     Indication: B-CELL LYMPHOMA
     Dosage: 8 COURSES, R-CHOP PROTOCOL
     Route: 042
     Dates: start: 20111010, end: 20120309
  11. ENDOXAN 1000 MG, POUDRE POUR SOLUTION INJECTABLE [Suspect]
     Active Substance: CYCLOPHOSPHAMIDE
     Indication: B-CELL LYMPHOMA
     Dosage: 8 COURSES, R-CHOP PROTOCOL
     Route: 042
     Dates: start: 20111008, end: 20120309
  12. DEXAMETHASONE. [Suspect]
     Active Substance: DEXAMETHASONE
     Dosage: THIRD COURSE, DHOX PROTOCOL
     Route: 065
     Dates: start: 201208
  13. CYTARABINE. [Suspect]
     Active Substance: CYTARABINE
     Indication: B-CELL LYMPHOMA
     Dosage: HIGH DOSE, DHOX PROTOCOL
     Route: 065
     Dates: start: 20120712
  14. HOLOXAN 4 G, LYOPHILISAT POUR SOLUTION INJECTABLE [Suspect]
     Active Substance: IFOSFAMIDE
     Indication: B-CELL LYMPHOMA
     Dosage: 2 CYCLES, MIV PROTOCOL
     Route: 065
     Dates: start: 201206, end: 201206
  15. DOXORUBICIN [Suspect]
     Active Substance: DOXORUBICIN
     Indication: B-CELL LYMPHOMA
     Dosage: 8 COURSES, R-CHOP PROTOCOL
     Route: 042
     Dates: start: 20111008, end: 20120309
  16. CYTARABINE. [Suspect]
     Active Substance: CYTARABINE
     Dosage: THIRD COURSE, DHOX PROTOCOL
     Route: 065
     Dates: start: 201208

REACTIONS (2)
  - No therapeutic response [Unknown]
  - Progressive multifocal leukoencephalopathy [Fatal]

NARRATIVE: CASE EVENT DATE: 201207
